FAERS Safety Report 9893827 (Version 2)
Quarter: 2014Q3

REPORT INFORMATION
  Report Type: Spontaneous
  Country: FR (occurrence: FR)
  Receive Date: 20140213
  Receipt Date: 20140826
  Transmission Date: 20150326
  Serious: Yes (Hospitalization)
  Sender: FDA-Public Use
  Company Number: FR-PFIZER INC-2014035205

PATIENT
  Age: 75 Year
  Sex: Male

DRUGS (14)
  1. ZYLORIC [Concomitant]
     Active Substance: ALLOPURINOL
  2. TRIATEC [Suspect]
     Active Substance: RAMIPRIL
     Indication: HYPERTENSION
     Dosage: 2.5 MG, 1X/DAY
     Route: 048
     Dates: start: 20131031
  3. BISOCE [Suspect]
     Active Substance: BISOPROLOL
     Indication: HYPERTENSION
     Dosage: 3.75 MG, 1X/DAY
     Route: 048
     Dates: start: 20131024
  4. KARDEGIC [Concomitant]
     Active Substance: ASPIRIN LYSINE
  5. SINTROM [Concomitant]
     Active Substance: ACENOCOUMAROL
  6. TARDYFERON [Concomitant]
     Active Substance: FERROUS SULFATE\FOLIC ACID
  7. CORDARONE [Concomitant]
     Active Substance: AMIODARONE HYDROCHLORIDE
  8. HAVLANE [Concomitant]
     Active Substance: LOPRAZOLAM
  9. PARIET [Concomitant]
     Active Substance: RABEPRAZOLE SODIUM
  10. JOSIR [Concomitant]
     Active Substance: TAMSULOSIN
  11. ALDACTONE [Suspect]
     Active Substance: SPIRONOLACTONE
     Indication: HYPERTENSION
     Dosage: 50 MG, 1X/DAY
     Route: 048
     Dates: start: 20131024
  12. CRESTOR [Concomitant]
     Active Substance: ROSUVASTATIN CALCIUM
  13. DIGOXIN ^NATIVELLE^ [Suspect]
     Active Substance: DIGOXIN
     Indication: ATRIAL FIBRILLATION
     Dosage: 0.25 MG, 1X/DAY
     Route: 048
     Dates: start: 20131022, end: 20131114
  14. LASILIX [Suspect]
     Active Substance: FUROSEMIDE
     Indication: HYPERTENSION
     Dosage: 120 MG, 1X/DAY
     Route: 048
     Dates: start: 20131031

REACTIONS (6)
  - Bradycardia [Recovered/Resolved]
  - Vomiting [Recovered/Resolved]
  - Blood pressure decreased [Recovered/Resolved]
  - Malaise [Recovered/Resolved]
  - Renal failure [Recovered/Resolved]
  - Chromatopsia [Recovered/Resolved]

NARRATIVE: CASE EVENT DATE: 20131114
